FAERS Safety Report 8085292-2 (Version None)
Quarter: 2012Q1

REPORT INFORMATION
  Report Type: 
  Country: None (occurrence: None)
  Receive Date: 20120128
  Receipt Date: 20110315
  Transmission Date: 20120608
  Serious: No
  Sender: FDA-Public Use
  Company Number: US-ABBOTT-11P-163-0711938-00

PATIENT
  Sex: Female
  Weight: 72.64 kg

DRUGS (1)
  1. HUMIRA [Suspect]
     Indication: PSORIASIS
     Dosage: LOADING DOSE
     Route: 058
     Dates: start: 20110310, end: 20110310

REACTIONS (5)
  - RASH PRURITIC [None]
  - INJECTION SITE HAEMATOMA [None]
  - RASH PAPULAR [None]
  - INJECTION SITE HAEMORRHAGE [None]
  - INJECTION SITE ERYTHEMA [None]
